FAERS Safety Report 10443998 (Version 1)
Quarter: 2014Q3

REPORT INFORMATION
  Report Type: Spontaneous
  Country: DE (occurrence: DE)
  Receive Date: 20140910
  Receipt Date: 20140910
  Transmission Date: 20150326
  Serious: Yes (Congenital Anomaly, Other)
  Sender: FDA-Public Use
  Company Number: DE-RANBAXY-2014RR-85001

PATIENT
  Age: 1 Day
  Sex: Male

DRUGS (7)
  1. VITAVERLAN [Concomitant]
     Indication: PROPHYLAXIS OF NEURAL TUBE DEFECT
     Dosage: 0.4 MG, DAILY, FROM 8.4 TO 12.4 GESTATIONAL WEEK
     Route: 064
     Dates: start: 20130117, end: 20130214
  2. GABAPENTIN. [Suspect]
     Active Substance: GABAPENTIN
     Indication: MULTIPLE SCLEROSIS
     Dosage: 3200 (MG/D (BIS 1200)/ UNTIL GW 3+1: 3200 MG/D; AGAIN FROM GW 14+2: 1200 MG/D
     Route: 064
     Dates: start: 20121118, end: 20130628
  3. ASS 100 [Concomitant]
     Active Substance: ASPIRIN
     Indication: THROMBOSIS PROPHYLAXIS
     Dosage: 100 MG, DAILY, FROM 20.5 TO 31.5 GESTATIONAL WEEK
     Route: 064
     Dates: start: 20130412, end: 20130628
  4. TYSABRI [Suspect]
     Active Substance: NATALIZUMAB
     Indication: MULTIPLE SCLEROSIS
     Dosage: FROM 0 TO 2.4 GESTATIONAL WEEK
     Route: 064
     Dates: start: 20121118, end: 20121206
  5. CLEXANE [Concomitant]
     Active Substance: ENOXAPARIN SODIUM
     Indication: THROMBOSIS
     Dosage: 40 MG, QD, FROM 0 TO 31.5 GESTATUIONAL WEEK
     Route: 064
     Dates: start: 20121118, end: 20130628
  6. FAMPYRA RETARD [Suspect]
     Active Substance: DALFAMPRIDINE
     Indication: MULTIPLE SCLEROSIS
     Dosage: 10 MG, QD, FROM 0 TO 3.1 GESTATIONAL WEEK
     Route: 064
     Dates: start: 20121118, end: 20121210
  7. REMERGIL [Suspect]
     Active Substance: MIRTAZAPINE
     Indication: DEPRESSION
     Dosage: 30 MG, QD, FROM 14.2 TO 31.5 GESTATIONAL WEEK
     Route: 064
     Dates: start: 20130226, end: 20130628

REACTIONS (5)
  - Small for dates baby [Recovering/Resolving]
  - Atrial septal defect [Unknown]
  - Feeding disorder neonatal [Recovered/Resolved]
  - Hypospadias [Not Recovered/Not Resolved]
  - Neonatal respiratory distress syndrome [Recovered/Resolved]

NARRATIVE: CASE EVENT DATE: 20130628
